FAERS Safety Report 15150946 (Version 11)
Quarter: 2021Q4

REPORT INFORMATION
  Report Type: Spontaneous
  Country: IT (occurrence: IT)
  Receive Date: 20180716
  Receipt Date: 20211231
  Transmission Date: 20220304
  Serious: Yes (Death, Life-Threatening, Hospitalization, Other)
  Sender: FDA-Public Use
  Company Number: PHHY2018IT045963

PATIENT
  Age: 61 Year
  Sex: Male

DRUGS (16)
  1. EVEROLIMUS [Suspect]
     Active Substance: EVEROLIMUS
     Indication: Immunosuppressant drug therapy
     Dosage: 3 MG, QD (STARTED FROM POST-OPERATIVE DAY 7 AND STOPPED ON POST OPERATIVE DAY 9, FROM POD7 TO POD9)
     Route: 065
     Dates: start: 201611, end: 2016
  2. ETANERCEPT [Suspect]
     Active Substance: ETANERCEPT
     Indication: Graft versus host disease
     Dosage: 50 MG, QW FROM POD19
     Route: 058
     Dates: start: 2016
  3. ETANERCEPT [Suspect]
     Active Substance: ETANERCEPT
     Indication: Immunosuppressant drug therapy
  4. ETANERCEPT [Suspect]
     Active Substance: ETANERCEPT
     Indication: Adjuvant therapy
  5. METHYLPREDNISOLONE [Suspect]
     Active Substance: METHYLPREDNISOLONE
     Indication: Immunosuppressant drug therapy
     Dosage: 20 MG, QD INDUCTION FROM POSTOPERATIVE DAY (POD) 1
     Route: 065
     Dates: start: 201611, end: 201611
  6. METHYLPREDNISOLONE [Suspect]
     Active Substance: METHYLPREDNISOLONE
     Dosage: 40 MG, QD FROM POD19
     Route: 065
     Dates: start: 2016
  7. TACROLIMUS [Suspect]
     Active Substance: TACROLIMUS
     Indication: Immunosuppressant drug therapy
     Dosage: 0.075 MG/KG, QD
     Route: 065
     Dates: start: 201611
  8. TACROLIMUS [Suspect]
     Active Substance: TACROLIMUS
     Dosage: 0.08 MG/KG, QD (0.075 MG/KG DAILY; STARTED FROM POD3; FROM POD9 DISCONTINUOUSLY)
     Route: 065
  9. TACROLIMUS [Suspect]
     Active Substance: TACROLIMUS
     Dosage: 0.04 MG/KG, QD .04 MG/KG DAILY; FROM POD 190.08 MG/KG, QD (STARTED FROM POD3; FROM POD9
     Route: 065
     Dates: start: 2016
  10. TACROLIMUS [Suspect]
     Active Substance: TACROLIMUS
     Dosage: 0.08 MG/KG, QD (.075 MG/KG DAILY; STARTED FROM POD3; FROM POD9 DISCONTINUOUSLY)
     Route: 065
     Dates: start: 201611, end: 2016
  11. CASPOFUNGIN ACETATE [Suspect]
     Active Substance: CASPOFUNGIN ACETATE
     Indication: Antifungal prophylaxis
     Dosage: UNK
     Route: 065
  12. MEROPENEM [Suspect]
     Active Substance: MEROPENEM
     Indication: Antibiotic prophylaxis
     Dosage: UNK
     Route: 066
  13. DAPTOMYCIN [Suspect]
     Active Substance: DAPTOMYCIN
     Indication: Antibiotic prophylaxis
     Dosage: UNK
     Route: 065
  14. DAPTOMYCIN [Suspect]
     Active Substance: DAPTOMYCIN
     Indication: Prophylaxis
  15. GANCICLOVIR [Suspect]
     Active Substance: GANCICLOVIR
     Indication: Cytomegalovirus infection
     Dosage: 5 MG/KG, QD
     Route: 065
  16. GANCICLOVIR [Suspect]
     Active Substance: GANCICLOVIR
     Indication: Antiviral treatment

REACTIONS (22)
  - Septic shock [Fatal]
  - Aspergillus infection [Fatal]
  - Enterococcal infection [Fatal]
  - Cytomegalovirus infection [Fatal]
  - Multiple organ dysfunction syndrome [Fatal]
  - Graft versus host disease in skin [Fatal]
  - Systemic inflammatory response syndrome [Fatal]
  - Drug ineffective [Fatal]
  - Graft versus host disease in gastrointestinal tract [Fatal]
  - Pyrexia [Fatal]
  - Rash [Fatal]
  - Chimerism [Unknown]
  - Diarrhoea [Unknown]
  - Intestinal haemorrhage [Unknown]
  - Bone marrow disorder [Unknown]
  - Enteritis [Unknown]
  - Aplastic anaemia [Unknown]
  - Malnutrition [Unknown]
  - Haemoglobin decreased [Unknown]
  - Platelet count decreased [Unknown]
  - Leukopenia [Recovering/Resolving]
  - Off label use [Unknown]

NARRATIVE: CASE EVENT DATE: 20160101
